FAERS Safety Report 12255534 (Version 1)
Quarter: 2016Q2

REPORT INFORMATION
  Report Type: Spontaneous
  Country: US (occurrence: None)
  Receive Date: 20160411
  Receipt Date: 20160411
  Transmission Date: 20160815
  Serious: Yes (Life-Threatening, Hospitalization)
  Sender: FDA-Public Use
  Company Number: None

PATIENT
  Age: 55 Year
  Sex: Male
  Weight: 88.5 kg

DRUGS (9)
  1. SAVAYSA [Suspect]
     Active Substance: EDOXABAN TOSYLATE
     Indication: ATRIAL FIBRILLATION
     Route: 048
     Dates: start: 20160325, end: 20160407
  2. LIPITOR [Concomitant]
     Active Substance: ATORVASTATIN CALCIUM
  3. IMDUR [Concomitant]
     Active Substance: ISOSORBIDE MONONITRATE
  4. TYLENOL [Concomitant]
     Active Substance: ACETAMINOPHEN
  5. NITROSTAT [Concomitant]
     Active Substance: NITROGLYCERIN
  6. TRAZODONE [Concomitant]
     Active Substance: TRAZODONE HYDROCHLORIDE
  7. LISINOPRIL. [Concomitant]
     Active Substance: LISINOPRIL
  8. AMIODARONE [Concomitant]
     Active Substance: AMIODARONE
  9. ASPIRIN. [Concomitant]
     Active Substance: ASPIRIN

REACTIONS (1)
  - Basal ganglia haemorrhage [None]

NARRATIVE: CASE EVENT DATE: 20160407
